FAERS Safety Report 5030483-8 (Version None)
Quarter: 2006Q2

REPORT INFORMATION
  Report Type: 
  Country: None (occurrence: None)
  Receive Date: 20060614
  Receipt Date: 20060529
  Transmission Date: 20061013
  Serious: Yes (Hospitalization)
  Sender: FDA-Public Use
  Company Number: 224515

PATIENT
  Age: 63 Year
  Sex: Male
  Weight: 80 kg

DRUGS (19)
  1. AVASTIN [Suspect]
     Indication: COLORECTAL CANCER
     Dosage: 5 MG/KG, Q2W, INTRAVENOUS
     Route: 042
     Dates: start: 20051108
  2. IRINOTECAN HCL [Suspect]
     Indication: COLORECTAL CANCER
     Dosage: 180 MG/M2, Q2W, INTRAVENOUS
     Route: 042
     Dates: start: 20051108
  3. FLUOROURACIL [Suspect]
     Indication: COLORECTAL CANCER
     Dosage: SEE IMAGE
     Route: 042
     Dates: start: 20051108
  4. FLUOROURACIL [Suspect]
     Indication: COLORECTAL CANCER
     Dosage: SEE IMAGE
     Route: 042
     Dates: start: 20051108
  5. FLECAINIDE ACETATE [Concomitant]
  6. BISOPROLOL FUMARATE [Concomitant]
  7. PERMIXON (SAW PALMETTO) [Concomitant]
  8. OMEPRAZOLE [Concomitant]
  9. ONDANSETRON [Concomitant]
  10. MEDICATION (UNK INGREDIENT) (GENERIC COMPONENT(S) NOT KNOWN) [Concomitant]
  11. LOPERAMIDE [Concomitant]
  12. ALPRAZOLAM [Concomitant]
  13. NEULASTA [Concomitant]
  14. PREDNISOLONE [Concomitant]
  15. EMEND [Concomitant]
  16. FORLAX (POLYETHYLENE GLYCOL, POTASSIUM NOS, SODIUM BICARBONATE, SODIUM [Concomitant]
  17. RHAMNUS PURSHIANA (CASCARA) [Concomitant]
  18. DAFLON (FRANCE) (BIOFLAVONOIDS, DIOSMIN, HESPERIDIN) [Concomitant]
  19. PROCTOLOG (RUSCOGENIN, TRIMEBUTINE) [Concomitant]

REACTIONS (5)
  - CHILLS [None]
  - HAEMOGLOBIN DECREASED [None]
  - HYPERTHERMIA [None]
  - PLATELET COUNT DECREASED [None]
  - WHITE BLOOD CELL COUNT DECREASED [None]
